FAERS Safety Report 8859089 (Version 1)
Quarter: 2012Q4

REPORT INFORMATION
  Report Type: Report from Study
  Country: US (occurrence: US)
  Receive Date: 20121024
  Receipt Date: 20121024
  Transmission Date: 20130627
  Serious: Yes (Other)
  Sender: FDA-Public Use
  Company Number: US-JNJFOC-20121010180

PATIENT
  Age: 67 Year
  Sex: Male
  Weight: 112.49 kg

DRUGS (1)
  1. USTEKINUMAB [Suspect]
     Indication: PSORIASIS
     Route: 058
     Dates: start: 200912

REACTIONS (1)
  - Basal cell carcinoma [Recovered/Resolved]
